FAERS Safety Report 15695738 (Version 2)
Quarter: 2019Q1

REPORT INFORMATION
  Report Type: Report from Study
  Country: HU (occurrence: HU)
  Receive Date: 20181206
  Receipt Date: 20190102
  Transmission Date: 20190417
  Serious: Yes (Hospitalization, Other)
  Sender: FDA-Public Use
  Company Number: HU-BAYER-2018-169523

PATIENT
  Sex: Male
  Weight: 114 kg

DRUGS (14)
  1. STIVARGA [Suspect]
     Active Substance: REGORAFENIB
     Indication: COLORECTAL CANCER METASTATIC
     Dosage: DAILY DOSE 160 MG
     Route: 048
     Dates: end: 20190102
  2. FURSEMID [FUROSEMIDE] [Concomitant]
     Dosage: 40 MG, QD
  3. CLEXANE [Concomitant]
     Active Substance: ENOXAPARIN SODIUM
     Dosage: 0.6 ML, QD
  4. TIOTROPIUM BROMIDE [Concomitant]
     Active Substance: TIOTROPIUM BROMIDE
     Dosage: UNK
  5. STIVARGA [Suspect]
     Active Substance: REGORAFENIB
     Indication: COLORECTAL CANCER METASTATIC
     Dosage: DAILY DOSE 120 MG
     Route: 048
     Dates: start: 20180905
  6. ISOPTIN [VERAPAMIL] [Concomitant]
     Dosage: 240 MG, OM
  7. DIAPREL [Concomitant]
     Active Substance: GLICLAZIDE
     Dosage: 60 MG, QD
  8. ASPIRIN PROTECT [Concomitant]
     Active Substance: ASPIRIN
     Dosage: 100 MG, QD
  9. POTASSIUM CHLORIDE. [Concomitant]
     Active Substance: POTASSIUM CHLORIDE
     Dosage: UNK
  10. RED BLOOD CELLS, CONCENTRATED [Concomitant]
     Active Substance: HUMAN RED BLOOD CELL
     Indication: ANAEMIA
     Dosage: 4 UNITS
     Route: 042
  11. CAPECITABINE. [Concomitant]
     Active Substance: CAPECITABINE
     Dosage: 900 MG, BID
  12. COVEREX [Concomitant]
     Active Substance: PERINDOPRIL ERBUMINE
     Dosage: 5 MG, OM
  13. TALLITON [Concomitant]
     Active Substance: CARVEDILOL
     Dosage: UNK
  14. CONTROLOC [PANTOPRAZOLE] [Concomitant]
     Dosage: 20 MG, OM

REACTIONS (12)
  - Back pain [Not Recovered/Not Resolved]
  - Skin warm [Recovered/Resolved]
  - Palmoplantar keratoderma [None]
  - Dyspnoea exertional [Recovered/Resolved]
  - Dysphonia [Recovering/Resolving]
  - Sensitive skin [Recovered/Resolved]
  - Limb injury [Not Recovered/Not Resolved]
  - Pyrexia [Recovered/Resolved]
  - Rash generalised [Recovered/Resolved]
  - Weight decreased [None]
  - Palmar-plantar erythrodysaesthesia syndrome [Recovered/Resolved]
  - Colorectal cancer metastatic [Not Recovered/Not Resolved]

NARRATIVE: CASE EVENT DATE: 20180906
